FAERS Safety Report 18379109 (Version 4)
Quarter: 2021Q2

REPORT INFORMATION
  Report Type: Spontaneous
  Country: PT (occurrence: PT)
  Receive Date: 20201014
  Receipt Date: 20210517
  Transmission Date: 20210717
  Serious: Yes (Hospitalization, Other)
  Sender: FDA-Public Use
  Company Number: PT-AUROBINDO-AUR-APL-2020-051869

PATIENT
  Age: 75 Year
  Sex: Female

DRUGS (2)
  1. NEBIVOLOL. [Concomitant]
     Active Substance: NEBIVOLOL
     Indication: HYPERTENSION
     Dosage: UNK
     Route: 065
  2. AMIODARONE [Suspect]
     Active Substance: AMIODARONE
     Indication: ATRIAL FIBRILLATION
     Dosage: UNK
     Route: 065

REACTIONS (9)
  - Lymphocytic infiltration [Recovering/Resolving]
  - Respiratory failure [Recovering/Resolving]
  - Lung abscess [Recovering/Resolving]
  - Overdose [Unknown]
  - Organising pneumonia [Recovering/Resolving]
  - Interstitial lung disease [Recovering/Resolving]
  - Vasculitis [Recovering/Resolving]
  - Toxicity to various agents [Recovering/Resolving]
  - Drug abuse [Unknown]
